FAERS Safety Report 10039704 (Version 4)
Quarter: 2014Q2

REPORT INFORMATION
  Report Type: Spontaneous
  Country: JP (occurrence: JP)
  Receive Date: 20140326
  Receipt Date: 20140424
  Transmission Date: 20141212
  Serious: Yes (Hospitalization)
  Sender: FDA-Public Use
  Company Number: JP-JNJFOC-20140309727

PATIENT
  Sex: 0

DRUGS (1)
  1. DUROTEP MT [Suspect]
     Indication: PAIN
     Route: 062

REACTIONS (5)
  - Investigation [Unknown]
  - Wrong technique in drug usage process [Unknown]
  - Overdose [Unknown]
  - Physical product label issue [Unknown]
  - Incorrect drug administration duration [Unknown]
